FAERS Safety Report 25759874 (Version 1)
Quarter: 2025Q3

REPORT INFORMATION
  Report Type: Spontaneous
  Country: EU (occurrence: EU)
  Receive Date: 20250904
  Receipt Date: 20250904
  Transmission Date: 20251021
  Serious: Yes (Hospitalization)
  Sender: RANBAXY
  Company Number: EU-URPL-DML-MLP.4401.1.3687.2021

PATIENT
  Age: 14 Year
  Sex: Female

DRUGS (1)
  1. IBUPROFEN [Suspect]
     Active Substance: IBUPROFEN
     Indication: Product used for unknown indication
     Route: 048
     Dates: start: 20210906, end: 20210906

REACTIONS (5)
  - Toxicity to various agents [Recovered/Resolved]
  - Asthenia [Recovered/Resolved]
  - Apathy [Recovered/Resolved]
  - Somnolence [Recovered/Resolved]
  - Blood pressure abnormal [Recovered/Resolved]

NARRATIVE: CASE EVENT DATE: 20210906
